FAERS Safety Report 8596117-0 (Version None)
Quarter: 2012Q3

REPORT INFORMATION
  Report Type: 
  Country: None (occurrence: None)
  Receive Date: 20120815
  Receipt Date: 20120806
  Transmission Date: 20120928
  Serious: Yes (Death)
  Sender: FDA-Public Use
  Company Number: US-CELGENEUS-163-21880-12080329

PATIENT
  Sex: Male
  Weight: 82.4 kg

DRUGS (27)
  1. REVLIMID [Suspect]
     Indication: MULTIPLE MYELOMA
     Dosage: 25 MILLIGRAM
     Route: 048
     Dates: start: 20110815, end: 20120709
  2. CARFILZOMIB [Suspect]
     Indication: MULTIPLE MYELOMA
     Dosage: 38 MILLIGRAM
     Route: 065
     Dates: start: 20110815
  3. VICODIN [Concomitant]
     Indication: BACK PAIN
     Dosage: 5/500MG
     Route: 048
     Dates: start: 20110815
  4. CARFILZOMIB [Suspect]
     Route: 065
     Dates: start: 20120423, end: 20120730
  5. DEXAMETHASONE [Suspect]
     Route: 065
     Dates: start: 20120402, end: 20120611
  6. WARFARIN SODIUM [Concomitant]
     Indication: ANTICOAGULANT THERAPY
     Dosage: 10 MILLIGRAM
     Route: 048
     Dates: start: 20110608
  7. WARFARIN SODIUM [Concomitant]
     Indication: ANTIPLATELET THERAPY
  8. CARVEDILOL [Concomitant]
     Indication: ATRIAL FIBRILLATION
     Dosage: 6.25 MILLIGRAM
     Route: 048
     Dates: start: 20110210
  9. LASIX [Concomitant]
     Dosage: 40 MILLIGRAM
     Route: 048
     Dates: start: 20120130
  10. ZOMETA [Concomitant]
     Indication: PROPHYLAXIS
     Dosage: 4 MILLIGRAM
     Route: 041
     Dates: start: 20110318
  11. CARFILZOMIB [Suspect]
     Route: 065
     Dates: start: 20110822
  12. CARFILZOMIB [Suspect]
     Route: 065
     Dates: start: 20111205
  13. CARFILZOMIB [Suspect]
     Route: 065
     Dates: start: 20120227
  14. CARVEDILOL [Concomitant]
     Indication: HYPERTENSION
  15. CARFILZOMIB [Suspect]
     Route: 065
     Dates: start: 20110912
  16. DEXAMETHASONE [Suspect]
     Route: 065
     Dates: start: 20111205
  17. POTASSIUM CHLORIDE [Concomitant]
     Indication: PROPHYLAXIS
     Dosage: 20 MILLIEQUIVALENTS
     Route: 048
     Dates: start: 20120130
  18. DEXAMETHASONE [Suspect]
     Route: 065
     Dates: start: 20120326
  19. COMPAZINE [Concomitant]
     Dosage: 60 MILLIGRAM
     Route: 065
     Dates: start: 20110815
  20. LASIX [Concomitant]
  21. CARFILZOMIB [Suspect]
     Route: 065
     Dates: start: 20120103
  22. DEXAMETHASONE [Suspect]
     Indication: MULTIPLE MYELOMA
     Route: 065
     Dates: start: 20110815
  23. VALACYCLOVIR HYDROCHLORIDE [Concomitant]
     Indication: ANTIVIRAL PROPHYLAXIS
     Dosage: 500 MILLIGRAM
     Route: 048
     Dates: start: 20110813
  24. DEXAMETHASONE [Suspect]
     Route: 065
     Dates: start: 20111128
  25. CALCIUM [Concomitant]
     Dosage: 1200 MILLIGRAM
     Route: 048
     Dates: start: 20111220
  26. METFORMIN HYDROCHLORIDE [Concomitant]
     Indication: TYPE 2 DIABETES MELLITUS
     Dosage: 2000 MILLIGRAM
     Route: 048
     Dates: start: 20101123
  27. OMEPRAZOLE [Concomitant]
     Indication: DRUG THERAPY
     Dosage: 20 MILLIGRAM
     Route: 048
     Dates: start: 20110813

REACTIONS (1)
  - MYOCARDIAL INFARCTION [None]
